FAERS Safety Report 23014462 (Version 1)
Quarter: 2023Q4

REPORT INFORMATION
  Report Type: Spontaneous
  Country: US (occurrence: US)
  Receive Date: 20231002
  Receipt Date: 20231002
  Transmission Date: 20240110
  Serious: No
  Sender: FDA-Public Use
  Company Number: US-ABBVIE-5429300

PATIENT
  Sex: Male

DRUGS (1)
  1. SKYRIZI [Suspect]
     Active Substance: RISANKIZUMAB-RZAA
     Indication: Psoriatic arthropathy
     Dosage: FORM STRENGTH: 150 MILLIGRAM,? FREQUENCY TEXT: UNKNOWN? START DATE TEXT: UNKNOWN? STOP DATE TEXT:...
     Route: 058

REACTIONS (2)
  - Injection site pain [Unknown]
  - Wrong technique in product usage process [Not Recovered/Not Resolved]
